FAERS Safety Report 25711760 (Version 1)
Quarter: 2025Q3

REPORT INFORMATION
  Report Type: Spontaneous
  Country: US (occurrence: US)
  Receive Date: 20250821
  Receipt Date: 20250821
  Transmission Date: 20251020
  Serious: Yes (Other)
  Sender: AMGEN
  Company Number: US-AMGEN-USASP2025162781

PATIENT
  Age: 66 Year
  Sex: Female

DRUGS (1)
  1. AIMOVIG [Suspect]
     Active Substance: ERENUMAB-AOOE
     Indication: Product used for unknown indication
     Route: 065

REACTIONS (7)
  - Fracture [Unknown]
  - Device difficult to use [Unknown]
  - Osteopenia [Unknown]
  - Osteoarthritis [Unknown]
  - Fall [Unknown]
  - Injection site indentation [Unknown]
  - Device use error [Unknown]

NARRATIVE: CASE EVENT DATE: 20250813
